FAERS Safety Report 10396175 (Version 1)
Quarter: 2014Q1

REPORT INFORMATION
  Report Type: Spontaneous
  Country: US (occurrence: None)
  Receive Date: 20130805
  Receipt Date: 20130805
  Transmission Date: 20141002
  Serious: Yes (Other)
  Sender: FDA-Public Use
  Company Number: 2013-06895

PATIENT
  Age: 57 Year
  Sex: Male

DRUGS (2)
  1. KADIAN (WATSON LABORATORIES) (MORPHINE SULFATE) CAPSULE (EXTENDED RELEASE), 100MG [Suspect]
     Indication: FIBROMYALGIA
     Route: 048
     Dates: start: 201201
  2. MELOXICAM [Concomitant]

REACTIONS (1)
  - Drug withdrawal syndrome [None]
